FAERS Safety Report 9967813 (Version 1)
Quarter: 2014Q1

REPORT INFORMATION
  Report Type: Report from Study
  Country: US (occurrence: US)
  Receive Date: 20140306
  Receipt Date: 20140306
  Transmission Date: 20141002
  Serious: No
  Sender: FDA-Public Use
  Company Number: US-ABBVIE-13P-163-1139819-00

PATIENT
  Age: 37 Year
  Sex: Female

DRUGS (12)
  1. HUMIRA [Suspect]
     Indication: COLITIS ULCERATIVE
     Dates: start: 20130522
  2. ZOMIG [Concomitant]
     Indication: MIGRAINE
  3. SINGULAIR [Concomitant]
     Indication: HYPERSENSITIVITY
  4. XYZAL [Concomitant]
     Indication: HYPERSENSITIVITY
  5. UNKNOWN BIRTH CONTROL [Concomitant]
     Indication: CONTRACEPTION
  6. CRESTOR [Concomitant]
     Indication: HYPERCHOLESTEROLAEMIA
  7. TRILIPIX [Concomitant]
     Indication: HYPERCHOLESTEROLAEMIA
  8. COLBREX SPRAY [Concomitant]
     Indication: RASH
  9. WELLBUTRIN [Concomitant]
     Indication: ANXIETY
  10. FLEXERIL [Concomitant]
     Indication: MIGRAINE
  11. FISH OIL [Concomitant]
     Indication: PRODUCT USED FOR UNKNOWN INDICATION
  12. VITAMINS [Concomitant]
     Indication: PRODUCT USED FOR UNKNOWN INDICATION

REACTIONS (4)
  - Cough [Not Recovered/Not Resolved]
  - Abdominal pain upper [Not Recovered/Not Resolved]
  - Ear infection [Not Recovered/Not Resolved]
  - Influenza [Not Recovered/Not Resolved]
